FAERS Safety Report 8175056-3 (Version None)
Quarter: 2012Q1

REPORT INFORMATION
  Report Type: 
  Country: None (occurrence: None)
  Receive Date: 20120229
  Receipt Date: 20120222
  Transmission Date: 20120608
  Serious: Yes (Hospitalization, Disabling, Other)
  Sender: FDA-Public Use
  Company Number: PHEH2012US003111

PATIENT
  Sex: Female
  Weight: 76 kg

DRUGS (7)
  1. RECLAST [Suspect]
     Indication: OSTEOPOROSIS
     Dosage: 5 MG, UNK
     Route: 042
     Dates: start: 20111214
  2. SYNTHROID [Concomitant]
  3. TRAMADOL HCL [Concomitant]
  4. CYCLOBENZAPRINE [Concomitant]
  5. HORMONAL CONTRACEPTIVES [Concomitant]
  6. PREMARIN [Concomitant]
  7. VOLTAREN [Concomitant]

REACTIONS (4)
  - CONFUSIONAL STATE [None]
  - DYSARTHRIA [None]
  - CEREBROVASCULAR ACCIDENT [None]
  - ATRIAL FIBRILLATION [None]
